FAERS Safety Report 7819099-5 (Version None)
Quarter: 2011Q4

REPORT INFORMATION
  Report Type: 
  Country: None (occurrence: None)
  Receive Date: 20111004
  Receipt Date: 20110928
  Transmission Date: 20120403
  Serious: Yes (Hospitalization)
  Sender: FDA-Public Use
  Company Number: 2011029917

PATIENT
  Age: 61 Year
  Sex: Female

DRUGS (13)
  1. CYCLOPHOSPHAMIDE [Concomitant]
  2. FLUDARA [Concomitant]
  3. LORZAAR PLUS (HYZAAR) [Concomitant]
  4. RITUXAN [Concomitant]
  5. FENISTIL (DIMETINDENE MALEATE) [Concomitant]
  6. AMPHO-MORONAL (AMPHOTERICIN B) [Concomitant]
  7. VERAPAMIL [Concomitant]
  8. LEVOTHYROXINE SODIUM [Concomitant]
  9. MOVIPREP [Concomitant]
  10. ALLOPURINOL [Concomitant]
  11. PRIVIGEN [Suspect]
     Indication: CHRONIC LYMPHOCYTIC LEUKAEMIA
     Dosage: 10 G, QD, INTRAVENOUS
     Route: 042
     Dates: start: 20110511, end: 20110511
  12. MCP [Concomitant]
  13. KALINOR [Concomitant]

REACTIONS (2)
  - PYREXIA [None]
  - C-REACTIVE PROTEIN INCREASED [None]
